FAERS Safety Report 17523690 (Version 1)
Quarter: 2020Q1

REPORT INFORMATION
  Report Type: Spontaneous
  Country: GB (occurrence: GB)
  Receive Date: 20200310
  Receipt Date: 20200310
  Transmission Date: 20200409
  Serious: Yes (Life-Threatening)
  Sender: FDA-Public Use
  Company Number: GB-MYLANLABS-2020M1025630

PATIENT
  Sex: Female

DRUGS (1)
  1. TRANEXAMIC ACID. [Suspect]
     Active Substance: TRANEXAMIC ACID
     Indication: EPISTAXIS
     Dosage: 1 DOSAGE FORM, QD(1 DF, QD)
     Route: 065

REACTIONS (1)
  - Epistaxis [Not Recovered/Not Resolved]
